FAERS Safety Report 23795644 (Version 1)
Quarter: 2024Q2

REPORT INFORMATION
  Report Type: Spontaneous
  Country: DE (occurrence: DE)
  Receive Date: 20240429
  Receipt Date: 20240429
  Transmission Date: 20240716
  Serious: Yes (Other)
  Sender: FDA-Public Use
  Company Number: DE-KYOWAKIRIN-2024KK009671

PATIENT

DRUGS (8)
  1. POTELIGEO [Suspect]
     Active Substance: MOGAMULIZUMAB-KPKC
     Indication: Cutaneous T-cell lymphoma
     Dosage: 82 MG (CORRESPONDING TO 1MG/KG BODY WEIGHT) OVER 2H
     Route: 065
     Dates: start: 20230915
  2. POTELIGEO [Suspect]
     Active Substance: MOGAMULIZUMAB-KPKC
     Dosage: UNK, (12TH ADMINISTRATION)
     Route: 065
     Dates: start: 20240315
  3. POTELIGEO [Suspect]
     Active Substance: MOGAMULIZUMAB-KPKC
     Dosage: UNK, (13TH ADMINISTRATION)
     Route: 065
     Dates: start: 20240405
  4. POTELIGEO [Suspect]
     Active Substance: MOGAMULIZUMAB-KPKC
     Dosage: PREVIOUS INFUSIONS, (14TH ADMINISTRATION)
     Route: 065
     Dates: start: 20240418
  5. POTELIGEO [Suspect]
     Active Substance: MOGAMULIZUMAB-KPKC
     Dosage: ANOTHER INFUSION REACTIONS (IR) OCCURRED VERY EARLY, AFTER APPROX. 10 ML INFUSION
     Route: 065
     Dates: start: 20240418
  6. ACETAMINOPHEN [Concomitant]
     Active Substance: ACETAMINOPHEN
     Indication: Product used for unknown indication
     Dosage: 1000 MG (1 HR BEFORE)
     Route: 065
     Dates: start: 20230915
  7. DIMETHINDENE [Concomitant]
     Active Substance: DIMETHINDENE
     Indication: Product used for unknown indication
     Dosage: 4 MG (1 AMPOULE (20 MIN BEFORE))
     Route: 065
     Dates: start: 20230915
  8. DIMENHYDRINATE [Concomitant]
     Active Substance: DIMENHYDRINATE
     Indication: Product used for unknown indication
     Dosage: 1 AMPOULE
     Route: 065

REACTIONS (11)
  - Syncope [Recovering/Resolving]
  - Infusion site erythema [Recovered/Resolved]
  - Interleukin level increased [Unknown]
  - Alpha tumour necrosis factor increased [Unknown]
  - Pallor [Unknown]
  - Flushing [Unknown]
  - Hypotension [Unknown]
  - Tachycardia [Unknown]
  - Dizziness [Recovering/Resolving]
  - Nausea [Recovering/Resolving]
  - Vomiting [Recovering/Resolving]

NARRATIVE: CASE EVENT DATE: 20240315
